FAERS Safety Report 4471345-4 (Version None)
Quarter: 2004Q4

REPORT INFORMATION
  Report Type: 
  Country: None (occurrence: None)
  Receive Date: 20041006
  Receipt Date: 20040920
  Transmission Date: 20050328
  Serious: Yes (Death)
  Sender: FDA-Public Use
  Company Number: 2004JP001748

PATIENT
  Age: 43 Year
  Sex: Female

DRUGS (2)
  1. PROGRAF [Suspect]
     Indication: LIVER TRANSPLANT
  2. PREDNISOLONE [Concomitant]

REACTIONS (4)
  - BILE DUCT STENOSIS [None]
  - HEPATITIS B VIRUS [None]
  - PATHOGEN RESISTANCE [None]
  - VIRAL MUTATION IDENTIFIED [None]
